FAERS Safety Report 5767418-6 (Version None)
Quarter: 2008Q2

REPORT INFORMATION
  Report Type: 
  Country: None (occurrence: None)
  Receive Date: 20080612
  Receipt Date: 20080603
  Transmission Date: 20081010
  Serious: Yes (Hospitalization, Other)
  Sender: FDA-Public Use
  Company Number: IT-BRISTOL-MYERS SQUIBB COMPANY-14224190

PATIENT
  Age: 75 Year
  Sex: Female

DRUGS (8)
  1. METFORMIN HCL [Suspect]
     Indication: TYPE 2 DIABETES MELLITUS
  2. LOSARTAN POTASSIUM [Concomitant]
  3. PROPANOL [Concomitant]
  4. PANTOPRAZOLE [Concomitant]
  5. PAROXETINE HCL [Concomitant]
  6. PREDNISONE TAB [Concomitant]
  7. FRAXIPARINE [Concomitant]
  8. EXEMESTANE [Concomitant]

REACTIONS (2)
  - LACTIC ACIDOSIS [None]
  - RENAL FAILURE ACUTE [None]
